FAERS Safety Report 7937453-8 (Version None)
Quarter: 2011Q4

REPORT INFORMATION
  Report Type: 
  Country: None (occurrence: None)
  Receive Date: 20111123
  Receipt Date: 20111118
  Transmission Date: 20120403
  Serious: Yes (Life-Threatening)
  Sender: FDA-Public Use
  Company Number: PHHY2011NO101454

PATIENT
  Sex: Male

DRUGS (3)
  1. FLUOROURACIL [Concomitant]
     Indication: COLON CANCER
     Route: 042
     Dates: start: 20110426, end: 20110920
  2. LEUCOVORIN CALCIUM [Concomitant]
     Indication: COLON CANCER
     Route: 042
     Dates: start: 20110426, end: 20110920
  3. OXALIPLATIN [Suspect]
     Indication: COLON CANCER
     Route: 042
     Dates: start: 20110426, end: 20111006

REACTIONS (4)
  - DISSEMINATED INTRAVASCULAR COAGULATION [None]
  - BODY TEMPERATURE INCREASED [None]
  - BLOOD BILIRUBIN INCREASED [None]
  - RENAL FAILURE [None]
